FAERS Safety Report 9627813 (Version 1)
Quarter: 2013Q4

REPORT INFORMATION
  Report Type: Spontaneous
  Country: US (occurrence: US)
  Receive Date: 20131016
  Receipt Date: 20131016
  Transmission Date: 20140711
  Serious: No
  Sender: FDA-Public Use
  Company Number: US-TEVA-438209USA

PATIENT
  Sex: Female

DRUGS (3)
  1. PROAIR HFA [Suspect]
     Indication: EMPHYSEMA
     Dosage: 2 SQUIRTS EVERY 6 HOURS
  2. ADVAIR [Suspect]
  3. SLEEP AID [Concomitant]

REACTIONS (3)
  - Rash generalised [Not Recovered/Not Resolved]
  - Dyspnoea [Not Recovered/Not Resolved]
  - Rash pruritic [Not Recovered/Not Resolved]
